FAERS Safety Report 18393784 (Version 1)
Quarter: 2020Q4

REPORT INFORMATION
  Report Type: Spontaneous
  Country: US (occurrence: US)
  Receive Date: 20201016
  Receipt Date: 20201016
  Transmission Date: 20210114
  Serious: Yes (Other)
  Sender: FDA-Public Use
  Company Number: US-PFIZER INC-2020397864

PATIENT
  Age: 80 Year
  Sex: Male
  Weight: 77.11 kg

DRUGS (1)
  1. VYNDAMAX [Suspect]
     Active Substance: TAFAMIDIS
     Indication: AMYLOIDOSIS
     Dosage: 61 MG, DAILY
     Dates: start: 202004

REACTIONS (7)
  - Asthenia [Recovering/Resolving]
  - Fall [Unknown]
  - Off label use [Unknown]
  - Confusional state [Unknown]
  - Product use in unapproved indication [Unknown]
  - Urinary tract infection [Unknown]
  - Dementia [Unknown]
